FAERS Safety Report 26062370 (Version 1)
Quarter: 2025Q4

REPORT INFORMATION
  Report Type: Spontaneous
  Country: US (occurrence: US)
  Receive Date: 20251119
  Receipt Date: 20251119
  Transmission Date: 20260117
  Serious: No
  Sender: AZURITY PHARMACEUTICALS
  Company Number: US-AZURITY PHARMACEUTICALS, INC.-AZR202508-002694

PATIENT
  Sex: Male

DRUGS (1)
  1. DANZITEN [Suspect]
     Active Substance: NILOTINIB
     Indication: Philadelphia positive chronic myeloid leukaemia
     Dosage: 190 MILLIGRAM, BID
     Route: 065
     Dates: start: 202508

REACTIONS (6)
  - Feeling abnormal [Unknown]
  - Dyspepsia [Unknown]
  - Anxiety [Unknown]
  - Pollakiuria [Unknown]
  - Constipation [Unknown]
  - Blood glucose increased [Unknown]
